FAERS Safety Report 7952670-9 (Version None)
Quarter: 2011Q4

REPORT INFORMATION
  Report Type: 
  Country: None (occurrence: None)
  Receive Date: 20111201
  Receipt Date: 20111121
  Transmission Date: 20120403
  Serious: Yes (Death, Hospitalization, Other)
  Sender: FDA-Public Use
  Company Number: US-BAXTER-2011BH034773

PATIENT
  Sex: Male

DRUGS (2)
  1. DIANEAL [Suspect]
     Indication: PERITONEAL DIALYSIS
     Route: 033
     Dates: start: 20080101, end: 20110101
  2. DIANEAL [Suspect]
     Indication: PERITONEAL DIALYSIS
     Route: 033
     Dates: start: 20080101, end: 20111031

REACTIONS (5)
  - PERITONEAL DIALYSIS COMPLICATION [None]
  - TREATMENT NONCOMPLIANCE [None]
  - DEATH [None]
  - FUNGAL PERITONITIS [None]
  - MYOCARDIAL INFARCTION [None]
